FAERS Safety Report 23755209 (Version 2)
Quarter: 2024Q2

REPORT INFORMATION
  Report Type: Report from Study
  Country: US (occurrence: US)
  Receive Date: 20240418
  Receipt Date: 20240426
  Transmission Date: 20240715
  Serious: Yes (Other)
  Sender: FDA-Public Use
  Company Number: US-AMNEAL PHARMACEUTICALS-2024-AMRX-01269

PATIENT
  Age: 74 Year
  Sex: Male

DRUGS (3)
  1. CARBIDOPA\LEVODOPA [Suspect]
     Active Substance: CARBIDOPA\LEVODOPA
     Indication: Product used for unknown indication
     Dosage: 2 (48.75/195 MG) CAPSULES, 4 /DAY. 5 HOURS APART. AT 7 AM, NOON, 5PM, 10PM.
     Route: 048
  2. CARBIDOPA\LEVODOPA [Suspect]
     Active Substance: CARBIDOPA\LEVODOPA
     Dosage: 1 (61.25-245 MG) CAPSULE, 4 /DAY, 5 HRS APART AT 7 AM, 12PM, 5PM, AND 10PM, TO BE TAKEN ALONG WITH 1
     Route: 048
     Dates: start: 20220617
  3. CARBIDOPA\LEVODOPA [Suspect]
     Active Substance: CARBIDOPA\LEVODOPA
     Dosage: 2 (61.25-245 MG) CAPSULES, 4 /DAY, 5 HRS APART AT 7 AM, 12PM, 5PM, AND 10PM
     Route: 048
     Dates: start: 20240422

REACTIONS (2)
  - Cervical vertebral fracture [Unknown]
  - Tremor [Unknown]

NARRATIVE: CASE EVENT DATE: 20230601
